FAERS Safety Report 5444959-2 (Version None)
Quarter: 2007Q3

REPORT INFORMATION
  Report Type: 
  Country: None (occurrence: None)
  Receive Date: 20070831
  Receipt Date: 20070820
  Transmission Date: 20080115
  Serious: Yes (Death, Hospitalization)
  Sender: FDA-Public Use
  Company Number: B0484833A

PATIENT
  Age: 82 Year
  Sex: Female

DRUGS (4)
  1. WARFARIN SODIUM [Suspect]
     Dosage: 2.5 MG PER DAY
  2. SIMVASTATIN [Suspect]
     Dosage: 10 MG PER DAY
     Dates: start: 20060101
  3. ASPIRIN [Suspect]
     Indication: TRANSIENT ISCHAEMIC ATTACK
     Dosage: 75 MG PER DAY
     Dates: start: 19980101
  4. TIMOLOL MALEATE [Concomitant]

REACTIONS (14)
  - BRAIN OEDEMA [None]
  - CEREBRAL HAEMORRHAGE [None]
  - CONSTIPATION [None]
  - CONTUSION [None]
  - DRUG INTERACTION [None]
  - EPISTAXIS [None]
  - FACIAL PALSY [None]
  - HYPOAESTHESIA [None]
  - INTERNATIONAL NORMALISED RATIO INCREASED [None]
  - INTRAVENTRICULAR HAEMORRHAGE [None]
  - LOSS OF CONSCIOUSNESS [None]
  - MONOPLEGIA [None]
  - RESPIRATORY ARREST [None]
  - THERAPEUTIC RESPONSE UNEXPECTED WITH DRUG SUBSTITUTION [None]
